FAERS Safety Report 6618037-0 (Version None)
Quarter: 2010Q1

REPORT INFORMATION
  Report Type: 
  Country: None (occurrence: None)
  Receive Date: 20100308
  Receipt Date: 20100302
  Transmission Date: 20100710
  Serious: Yes (Hospitalization)
  Sender: FDA-Public Use
  Company Number: US-BRISTOL-MYERS SQUIBB COMPANY-14999155

PATIENT
  Age: 69 Year
  Sex: Female

DRUGS (2)
  1. METFORMIN HCL [Suspect]
  2. LANTUS [Suspect]
     Indication: TYPE 2 DIABETES MELLITUS
     Dosage: LANTUS/PARENTERAL/INJECTION SOLUTION/100 IU/ML TIME OF ONSET:100 IU/ML 1DF-16 UNITS
     Route: 058
     Dates: start: 20080101

REACTIONS (3)
  - BLOOD PRESSURE INADEQUATELY CONTROLLED [None]
  - DIABETES MELLITUS INADEQUATE CONTROL [None]
  - FLUID IMBALANCE [None]
